FAERS Safety Report 16390544 (Version 1)
Quarter: 2019Q2

REPORT INFORMATION
  Report Type: Spontaneous
  Country: DK (occurrence: DK)
  Receive Date: 20190604
  Receipt Date: 20190604
  Transmission Date: 20190711
  Serious: Yes (Hospitalization)
  Sender: FDA-Public Use
  Company Number: DK-NOVOPROD-664461

PATIENT
  Age: 86 Year
  Sex: Male

DRUGS (10)
  1. WARFARIN [Concomitant]
     Active Substance: WARFARIN
     Indication: PRODUCT USED FOR UNKNOWN INDICATION
     Dosage: UNK
     Route: 065
  2. PECTYL [AMMONIA;CAMPHOR;GLYCEROL;GLYCYRRHIZA GLABRA;PAPAVER SOMNIFERUM [Concomitant]
     Indication: COUGH
     Dosage: 10 ML, QD
     Dates: start: 20171109, end: 20181109
  3. HYPROMELLOSE [Concomitant]
     Active Substance: HYPROMELLOSES
     Indication: PRODUCT USED FOR UNKNOWN INDICATION
     Dosage: UNK
     Route: 065
  4. TRAMADOL. [Concomitant]
     Active Substance: TRAMADOL
     Indication: PAIN
     Dosage: 50 MG
     Route: 048
     Dates: start: 20140115, end: 20181109
  5. NOVOMIX 30 FLEXPEN [Suspect]
     Active Substance: INSULIN ASPART
     Indication: DIABETES MELLITUS
     Dosage: 40 UNITS MORNING AND 20 UNITS EVENING
     Route: 048
     Dates: start: 20140131, end: 20181014
  6. KALIUMKLORID [Concomitant]
     Indication: SUPPLEMENTATION THERAPY
     Dosage: 750 MG, QD
     Route: 048
     Dates: start: 20140115, end: 20190103
  7. METOPROLOL. [Concomitant]
     Active Substance: METOPROLOL
     Indication: ARRHYTHMIA
     Dosage: 100 MG, QD
     Route: 048
     Dates: start: 20181014, end: 20190103
  8. HYDROCORTISONE. [Concomitant]
     Active Substance: HYDROCORTISONE
     Indication: PRODUCT USED FOR UNKNOWN INDICATION
     Dosage: UNK
     Route: 054
  9. BETNOVAT MED CHINOFORM [Concomitant]
     Indication: ANORECTAL DISCOMFORT
     Dosage: 1 DF
     Route: 065
     Dates: start: 20150508
  10. METHOTREXATE. [Concomitant]
     Active Substance: METHOTREXATE
     Indication: RHEUMATOID ARTHRITIS
     Dosage: 20 MG, QW
     Route: 048
     Dates: start: 20140220

REACTIONS (2)
  - Fall [Recovered/Resolved]
  - Hypoglycaemia [Recovered/Resolved]

NARRATIVE: CASE EVENT DATE: 201810
